FAERS Safety Report 10308818 (Version 7)
Quarter: 2015Q2

REPORT INFORMATION
  Report Type: Spontaneous
  Country: US (occurrence: US)
  Receive Date: 20140716
  Receipt Date: 20150612
  Transmission Date: 20150821
  Serious: No
  Sender: FDA-Public Use
  Company Number: US-PFIZER INC-2014199359

PATIENT
  Age: 58 Year
  Sex: Female
  Weight: 90.7 kg

DRUGS (18)
  1. LYRICA [Suspect]
     Active Substance: PREGABALIN
     Dosage: 300 MG, DAILY (75 MG IN MORNING, 225 MG BEDTIME)
  2. BYDURON [Concomitant]
     Indication: GLYCOSYLATED HAEMOGLOBIN INCREASED
     Dosage: 2 MG, WEEKLY
  3. LYRICA [Suspect]
     Active Substance: PREGABALIN
     Dosage: THREE ONE DAY AND FOUR THE NEXT
     Dates: end: 20150107
  4. METOPROLOL TARTRATE. [Concomitant]
     Active Substance: METOPROLOL TARTRATE
     Dosage: 25 MG, 1X/DAY
  5. PERCOCET [Concomitant]
     Active Substance: ACETAMINOPHEN\OXYCODONE HYDROCHLORIDE
     Dosage: 10 MG, THREE TIMES A DAY AS NEEDED
  6. LYRICA [Suspect]
     Active Substance: PREGABALIN
     Indication: NEUROPATHY PERIPHERAL
     Dosage: UNK
  7. BABY ASPIRIN [Concomitant]
     Active Substance: ASPIRIN
     Dosage: 162 MG, DAILY
  8. BUMETANIDE. [Concomitant]
     Active Substance: BUMETANIDE
     Indication: SWELLING
     Dosage: 1 MG (HALF OF 2MG TABLET), 1X/DAY
  9. METFORMIN [Concomitant]
     Active Substance: METFORMIN HYDROCHLORIDE
     Dosage: 1000 MG, 2X/DAY
  10. GLIMEPIRIDE. [Concomitant]
     Active Substance: GLIMEPIRIDE
     Dosage: 2 MG (HALF OF 4MG TABLET), 2X/DAY
  11. CLOPIDOGREL SULFATE [Concomitant]
     Active Substance: CLOPIDOGREL BISULFATE
     Dosage: 75 MG, 1X/DAY
  12. LYRICA [Suspect]
     Active Substance: PREGABALIN
     Indication: DIABETIC NEUROPATHY
     Dosage: 75 MG, 4X/DAY
     Dates: end: 20140710
  13. JARDIANCE [Concomitant]
     Active Substance: EMPAGLIFLOZIN
     Dosage: 10 MG, 1X/DAY
  14. LISINOPRIL. [Concomitant]
     Active Substance: LISINOPRIL
     Indication: DIABETIC COMPLICATION
     Dosage: 20 MG, 1X/DAY
  15. EXALGO [Concomitant]
     Active Substance: HYDROMORPHONE HYDROCHLORIDE
     Dosage: 12 MG, 1X/DAY
  16. TRAZODONE [Concomitant]
     Active Substance: TRAZODONE HYDROCHLORIDE
     Indication: SLEEP DISORDER
     Dosage: 50 MG, 1X/DAY AT BEDTIME
  17. OMEPRAZOLE. [Concomitant]
     Active Substance: OMEPRAZOLE
     Dosage: 20 MG, 1X/DAY
  18. ATORVASTATIN [Concomitant]
     Active Substance: ATORVASTATIN
     Dosage: 20 MG, 1X/DAY

REACTIONS (5)
  - Malaise [Recovered/Resolved]
  - Poor quality sleep [Recovered/Resolved]
  - Drug withdrawal syndrome [Recovered/Resolved]
  - Feeling jittery [Recovered/Resolved]
  - Pain [Recovered/Resolved]

NARRATIVE: CASE EVENT DATE: 20140710
